FAERS Safety Report 6457713-X (Version None)
Quarter: 2009Q4

REPORT INFORMATION
  Report Type: 
  Country: None (occurrence: None)
  Receive Date: 20091125
  Receipt Date: 20091119
  Transmission Date: 20100525
  Serious: Yes (Life-Threatening)
  Sender: FDA-Public Use
  Company Number: US-GENENTECH-287836

PATIENT
  Sex: Male
  Weight: 45 kg

DRUGS (11)
  1. XOLAIR [Suspect]
     Indication: ASTHMA
     Dosage: 375 MG, UNK
     Route: 058
     Dates: start: 20090630, end: 20090714
  2. ADVAIR DISKUS 100/50 [Concomitant]
     Indication: ASTHMA
     Dosage: 1 PUFF, BID
     Route: 055
  3. NASONEX [Concomitant]
     Indication: DRUG USE FOR UNKNOWN INDICATION
  4. ATROVENT [Concomitant]
     Indication: ASTHMA
     Dosage: 0.5 UNK, BID
     Route: 055
  5. XOPENEX [Concomitant]
     Indication: ASTHMA
     Dosage: 1.25 UNK, QID
     Route: 055
  6. PREVACID [Concomitant]
     Indication: UNEVALUABLE EVENT
     Dosage: 30 MG, BID
  7. SINGULAIR [Concomitant]
     Indication: ASTHMA
     Dosage: 5 MG, QD
     Route: 048
  8. LEXAPRO [Concomitant]
     Indication: ANXIETY
     Dosage: 20 MG, UNK
     Route: 048
  9. PULMICORT [Concomitant]
     Indication: ASTHMA
     Dosage: 1 MG, BID
  10. PREDNISONE [Concomitant]
     Indication: ASTHMA
     Dosage: 20 MG, QD
     Route: 048
  11. MIRALAX [Concomitant]
     Indication: CONSTIPATION
     Dosage: 1 G, QD
     Route: 048

REACTIONS (1)
  - ANAPHYLACTIC REACTION [None]
